FAERS Safety Report 19459037 (Version 2)
Quarter: 2021Q3

REPORT INFORMATION
  Report Type: Report from Study
  Country: US (occurrence: US)
  Receive Date: 20210624
  Receipt Date: 20210915
  Transmission Date: 20211014
  Serious: No
  Sender: FDA-Public Use
  Company Number: US-SA-2021SA206528

PATIENT
  Age: 54 Year
  Sex: Female

DRUGS (5)
  1. DUPILUMAB [Suspect]
     Active Substance: DUPILUMAB
     Indication: ASTHMA
     Dosage: 300 MG, QOW
     Route: 058
     Dates: start: 2020
  2. FLEXTRIL [Suspect]
     Active Substance: GLUCOSAMINE SULFATE
     Indication: PAIN
     Dosage: UNK UNK, QD
  3. DUPILUMAB [Suspect]
     Active Substance: DUPILUMAB
     Indication: NASAL POLYPS
  4. CYCLOBENZAPRINE HCL [Concomitant]
     Active Substance: CYCLOBENZAPRINE HYDROCHLORIDE
     Indication: PAIN
  5. MELOXICAM. [Concomitant]
     Active Substance: MELOXICAM

REACTIONS (6)
  - Pain [Unknown]
  - Muscle spasms [Unknown]
  - Somnolence [Unknown]
  - Injection site bruising [Unknown]
  - Road traffic accident [Unknown]
  - Product use in unapproved indication [Unknown]
